FAERS Safety Report 13477379 (Version 8)
Quarter: 2018Q2

REPORT INFORMATION
  Report Type: Report from Study
  Country: DE (occurrence: DE)
  Receive Date: 20170425
  Receipt Date: 20180629
  Transmission Date: 20180711
  Serious: Yes (Death, Other)
  Sender: FDA-Public Use
  Company Number: DE-BRISTOL-MYERS SQUIBB COMPANY-BMS-2017-035120

PATIENT
  Age: 77 Year
  Weight: 60 kg

DRUGS (2)
  1. CLOPIDOGREL BISULFATE. [Suspect]
     Active Substance: CLOPIDOGREL BISULFATE
     Indication: PRODUCT USED FOR UNKNOWN INDICATION
     Route: 048
  2. APIXABAN [Suspect]
     Active Substance: APIXABAN
     Indication: EMBOLISM VENOUS
     Dosage: 2.5 MG, BID
     Route: 048
     Dates: start: 20170321, end: 20170427

REACTIONS (6)
  - Haemorrhage [Unknown]
  - Spontaneous haematoma [Unknown]
  - Ear haemorrhage [Unknown]
  - Prescribed underdose [Unknown]
  - Chronic obstructive pulmonary disease [Fatal]
  - Epistaxis [Unknown]

NARRATIVE: CASE EVENT DATE: 20170401
